FAERS Safety Report 4335891-6 (Version None)
Quarter: 2004Q2

REPORT INFORMATION
  Report Type: 
  Country: None (occurrence: None)
  Receive Date: 20040409
  Receipt Date: 20040331
  Transmission Date: 20050107
  Serious: Yes (Hospitalization)
  Sender: FDA-Public Use
  Company Number: DE-BRISTOL-MYERS SQUIBB COMPANY-12548319

PATIENT
  Age: 75 Year
  Sex: Female
  Weight: 77 kg

DRUGS (2)
  1. TAXOL [Suspect]
     Indication: BREAST CANCER METASTATIC
     Dosage: 175 MG/M^2
     Route: 042
     Dates: start: 20040315, end: 20040315
  2. CAPECITABINE [Suspect]
     Indication: BREAST CANCER METASTATIC
     Dosage: 2000 MG/M^2 FROM 15-MAR TO 19-MAR-2004. INITIATED ON 27-NOV-2003.
     Route: 042
     Dates: start: 20040315, end: 20040319

REACTIONS (2)
  - HERPES ZOSTER [None]
  - LEUKOPENIA [None]
